FAERS Safety Report 13132425 (Version 1)
Quarter: 2017Q1

REPORT INFORMATION
  Report Type: Spontaneous
  Country: CO (occurrence: CO)
  Receive Date: 20170120
  Receipt Date: 20170120
  Transmission Date: 20170428
  Serious: Yes (Other)
  Sender: FDA-Public Use
  Company Number: CO-BAXTER-2017BAX001809

PATIENT
  Age: 0 Year
  Sex: Female
  Weight: 2.06 kg

DRUGS (3)
  1. DEXTROSA AL 10% USP [Suspect]
     Active Substance: DEXTROSE
     Dosage: 7.5 ML PER HOUR, DOSE RE-INTRODUCED
     Route: 042
     Dates: start: 20170104, end: 20170110
  2. AMPICILLIN SULBACTAM [Suspect]
     Active Substance: AMPICILLIN SODIUM\SULBACTAM SODIUM
     Indication: PROPHYLAXIS
     Route: 042
     Dates: start: 20170102, end: 20170110
  3. DEXTROSA AL 10% USP [Suspect]
     Active Substance: DEXTROSE
     Indication: DRUG THERAPY
     Dosage: 7.5 ML PER HOUR
     Route: 042
     Dates: start: 20170102, end: 20170104

REACTIONS (3)
  - Device infusion issue [Recovered/Resolved]
  - Hypoglycaemia [Recovered/Resolved]
  - Incorrect drug administration rate [Recovered/Resolved]

NARRATIVE: CASE EVENT DATE: 201701
